FAERS Safety Report 19394139 (Version 1)
Quarter: 2021Q2

REPORT INFORMATION
  Report Type: Spontaneous
  Country: JP (occurrence: JP)
  Receive Date: 20210609
  Receipt Date: 20210609
  Transmission Date: 20210717
  Serious: Yes (Other)
  Sender: FDA-Public Use
  Company Number: JP-ASTRAZENECA-2021A461758

PATIENT
  Age: 59 Year
  Sex: Female

DRUGS (1)
  1. FASENRA [Suspect]
     Active Substance: BENRALIZUMAB
     Indication: ASTHMA
     Dosage: DOSE UNKNOWN
     Route: 058

REACTIONS (8)
  - Eosinophilia [Unknown]
  - Deafness [Unknown]
  - Pyrexia [Unknown]
  - Seizure [Unknown]
  - Rhinitis allergic [Unknown]
  - Chills [Unknown]
  - Tinnitus [Unknown]
  - Gait disturbance [Unknown]
